FAERS Safety Report 7565074-8 (Version None)
Quarter: 2011Q2

REPORT INFORMATION
  Report Type: 
  Country: None (occurrence: None)
  Receive Date: 20110622
  Receipt Date: 20110520
  Transmission Date: 20111010
  Serious: Yes (Other)
  Sender: FDA-Public Use
  Company Number: US-MYLANLABS-2011S1009067

PATIENT
  Age: 50 Year
  Sex: Female

DRUGS (2)
  1. CHEMOTHERAPEUTICS [Suspect]
     Indication: METASTATIC UTERINE CANCER
     Route: 042
  2. CLOZAPINE [Suspect]
     Route: 048
     Dates: end: 20110401

REACTIONS (2)
  - LEUKOPENIA [None]
  - GRANULOCYTOPENIA [None]
